FAERS Safety Report 8435144-0 (Version None)
Quarter: 2012Q2

REPORT INFORMATION
  Report Type: 
  Country: None (occurrence: None)
  Receive Date: 20120614
  Receipt Date: 20120606
  Transmission Date: 20120825
  Serious: Yes (Hospitalization)
  Sender: FDA-Public Use
  Company Number: US-BAYER-2012-057436

PATIENT
  Age: 47 Year
  Sex: Female
  Weight: 84.807 kg

DRUGS (5)
  1. LEXAPRO [Concomitant]
     Dosage: 20 MG, QD
  2. YASMIN [Suspect]
     Indication: MENSTRUATION IRREGULAR
  3. ERYTHROMYCIN [Concomitant]
     Indication: CELLULITIS
  4. LEXAPRO [Concomitant]
     Dosage: 30 MG, QD
  5. WELLBUTRIN [Concomitant]

REACTIONS (1)
  - DEEP VEIN THROMBOSIS [None]
